FAERS Safety Report 5889522-4 (Version None)
Quarter: 2008Q3

REPORT INFORMATION
  Report Type: 
  Country: None (occurrence: None)
  Receive Date: 20080919
  Receipt Date: 20080912
  Transmission Date: 20090109
  Serious: Yes (Other)
  Sender: FDA-Public Use
  Company Number: GB-ASTRAZENECA-2008GB01712

PATIENT
  Age: 21347 Day
  Sex: Female

DRUGS (9)
  1. SEROQUEL [Suspect]
     Route: 048
     Dates: start: 20080909
  2. NYSTATIN [Concomitant]
     Route: 048
  3. MOVICOL [Concomitant]
     Dosage: MOVICOL SACHETS
  4. ZOPICLONE [Concomitant]
     Dosage: 3.75MG
  5. ESCITALOPRAM [Concomitant]
     Dosage: 10MG
  6. AMITRIPTYLINE HCL [Concomitant]
     Dosage: 10MG
  7. LANSOPRAZOLE [Concomitant]
     Dosage: 15MG
  8. DIAZEPAM [Concomitant]
     Dosage: 2MG
  9. PREDNISOLONE [Concomitant]
     Dosage: 10MG

REACTIONS (1)
  - NEUTROPHIL COUNT DECREASED [None]
